FAERS Safety Report 10269604 (Version 1)
Quarter: 2014Q2

REPORT INFORMATION
  Report Type: Spontaneous
  Country: ES (occurrence: None)
  Receive Date: 20140625
  Receipt Date: 20140625
  Transmission Date: 20141212
  Serious: Yes (Other)
  Sender: FDA-Public Use
  Company Number: 2014ES00604

PATIENT
  Age: 40 Year
  Sex: Female

DRUGS (4)
  1. GEMCITABINE (GEMCITABINE) INJECTION [Suspect]
     Indication: OVARIAN EPITHELIAL CANCER STAGE III
  2. CARBOPLATIN (CARBOPLATIN) INJECTION [Suspect]
     Indication: OVARIAN EPITHELIAL CANCER STAGE III
     Dosage: Q4W FOR 6 CYCLES
  3. CISPLATIN [Concomitant]
  4. PACLITAXEL [Concomitant]

REACTIONS (6)
  - Cutaneous vasculitis [None]
  - Lymphadenopathy [None]
  - Metastatic neoplasm [None]
  - Rash [None]
  - Pyrexia [None]
  - Arthralgia [None]
